FAERS Safety Report 9885028 (Version 1)
Quarter: 2014Q1

REPORT INFORMATION
  Report Type: Report from Study
  Country: CA (occurrence: CA)
  Receive Date: 20140210
  Receipt Date: 20140210
  Transmission Date: 20141002
  Serious: Yes (Other)
  Sender: FDA-Public Use
  Company Number: CA-JNJFOC-20140201659

PATIENT
  Age: 47 Year
  Sex: Female
  Weight: 73.1 kg

DRUGS (3)
  1. REMICADE [Suspect]
     Indication: CROHN^S DISEASE
     Route: 042
     Dates: start: 200910
  2. IMURAN [Concomitant]
     Route: 065
  3. GLUCOSAMINE [Concomitant]
     Route: 065

REACTIONS (1)
  - Visual field defect [Unknown]
